FAERS Safety Report 16559971 (Version 1)
Quarter: 2019Q3

REPORT INFORMATION
  Report Type: Spontaneous
  Country: CN (occurrence: CN)
  Receive Date: 20190711
  Receipt Date: 20190711
  Transmission Date: 20191004
  Serious: Yes (Other)
  Sender: FDA-Public Use
  Company Number: CN-BAYER-2019-124229

PATIENT
  Sex: Female

DRUGS (1)
  1. YASMIN [Suspect]
     Active Substance: DROSPIRENONE\ETHINYL ESTRADIOL
     Indication: ENDOMETRIOSIS
     Dosage: UNK
     Route: 048
     Dates: start: 201811

REACTIONS (13)
  - Muscular weakness [None]
  - Hyperhidrosis [None]
  - Restlessness [None]
  - Dysphoria [None]
  - Breast pain [Recovering/Resolving]
  - Breast swelling [Recovering/Resolving]
  - Embolism [None]
  - Muscle fatigue [None]
  - Off label use [None]
  - Pruritus [None]
  - Depression suicidal [None]
  - Vascular occlusion [None]
  - Product use in unapproved indication [None]

NARRATIVE: CASE EVENT DATE: 201811
